FAERS Safety Report 9851740 (Version 2)
Quarter: 2014Q1

REPORT INFORMATION
  Report Type: Spontaneous
  Country: FI (occurrence: FI)
  Receive Date: 20140129
  Receipt Date: 20140201
  Transmission Date: 20141002
  Serious: Yes (Hospitalization)
  Sender: FDA-Public Use
  Company Number: FI-ROCHE-1339826

PATIENT
  Age: 67 Year
  Sex: Female

DRUGS (4)
  1. MABTHERA [Suspect]
     Indication: RHEUMATOID ARTHRITIS
     Route: 042
     Dates: start: 20131029, end: 20131112
  2. MABTHERA [Suspect]
     Route: 042
     Dates: start: 20130531, end: 20130617
  3. MEDROL [Concomitant]
     Indication: RHEUMATOID ARTHRITIS
     Route: 048
  4. OXIKLORIN [Concomitant]
     Indication: RHEUMATOID ARTHRITIS
     Dosage: QD
     Route: 048

REACTIONS (3)
  - Neutropenia [Recovered/Resolved]
  - Bronchitis [Recovered/Resolved]
  - Infection [Recovered/Resolved]
